FAERS Safety Report 18100783 (Version 1)
Quarter: 2020Q3

REPORT INFORMATION
  Report Type: Other
  Country: FR (occurrence: FR)
  Receive Date: 20200731
  Receipt Date: 20200731
  Transmission Date: 20201103
  Serious: Yes (Other)
  Sender: FDA-Public Use
  Company Number: FR-COVIS PHARMA B.V.-2020COV00313

PATIENT
  Sex: Female

DRUGS (3)
  1. MAALOX ANTACID [Suspect]
     Active Substance: ALUMINUM HYDROXIDE\DIMETHICONE\MAGNESIUM HYDROXIDE
     Indication: PAIN
  2. OMEPRAZOLE MAGNESIUM. [Suspect]
     Active Substance: OMEPRAZOLE MAGNESIUM
     Indication: PAIN
     Route: 048
  3. CALCIUM CARBONATE. [Concomitant]
     Active Substance: CALCIUM CARBONATE
     Indication: PAIN

REACTIONS (4)
  - Oesophageal perforation [Unknown]
  - Exposure during pregnancy [Unknown]
  - Oesophageal pain [Unknown]
  - Drug ineffective [Unknown]
